FAERS Safety Report 22021722 (Version 1)
Quarter: 2023Q1

REPORT INFORMATION
  Report Type: Spontaneous
  Country: US (occurrence: None)
  Receive Date: 20230218
  Receipt Date: 20230218
  Transmission Date: 20230417
  Serious: Yes (Hospitalization)
  Sender: FDA-Public Use
  Company Number: None

PATIENT
  Age: 71 Year
  Sex: Female
  Weight: 82.8 kg

DRUGS (2)
  1. ENOXAPARIN [Suspect]
     Active Substance: ENOXAPARIN
     Indication: Cardiac valve disease
     Dosage: FREQUENCY : TWICE A DAY;?
     Route: 058
     Dates: start: 20230102, end: 20230118
  2. WARFARIN [Suspect]
     Active Substance: WARFARIN

REACTIONS (2)
  - Post procedural haemorrhage [None]
  - Cerebral infarction [None]

NARRATIVE: CASE EVENT DATE: 20230118
